FAERS Safety Report 10009551 (Version 2)
Quarter: 2014Q1

REPORT INFORMATION
  Report Type: Spontaneous
  Country: US (occurrence: US)
  Receive Date: 20140312
  Receipt Date: 20140312
  Transmission Date: 20141002
  Serious: No
  Sender: FDA-Public Use
  Company Number: US-INCYTE CORPORATION-2012IN001698

PATIENT
  Age: 59 Year
  Sex: Female

DRUGS (10)
  1. JAKAFI [Suspect]
     Indication: POLYCYTHAEMIA VERA
     Dosage: 20 MG, BID
     Route: 048
     Dates: start: 2012
  2. ATENOLOL [Concomitant]
  3. LOSARTAN [Concomitant]
  4. LEVOTHYROXINE [Concomitant]
  5. FAMOTIDINE [Concomitant]
  6. MISOPROSTOL [Concomitant]
  7. HYDROXYZINE [Concomitant]
  8. METHADONE [Concomitant]
  9. ONDANSETRON [Concomitant]
  10. SPIRONOLACTONE [Concomitant]

REACTIONS (6)
  - Swelling face [Unknown]
  - Local swelling [Unknown]
  - Local swelling [Unknown]
  - Pharyngeal oedema [Unknown]
  - Pharyngeal erythema [Unknown]
  - Therapeutic response unexpected [None]
